FAERS Safety Report 18119092 (Version 1)
Quarter: 2020Q3

REPORT INFORMATION
  Report Type: Spontaneous
  Country: US (occurrence: US)
  Receive Date: 20200806
  Receipt Date: 20200806
  Transmission Date: 20201103
  Serious: No
  Sender: FDA-Public Use
  Company Number: None

PATIENT
  Age: 29 Year
  Sex: Female
  Weight: 86.5 kg

DRUGS (1)
  1. FENTANYL / BUPIVACAINE EPIDURAL BAG [Suspect]
     Active Substance: BUPIVACAINE HYDROCHLORIDE\FENTANYL CITRATE
     Indication: LABOUR PAIN
     Route: 008
     Dates: start: 20200805, end: 20200805

REACTIONS (2)
  - Blood pressure decreased [None]
  - Product lot number issue [None]

NARRATIVE: CASE EVENT DATE: 20200805
